FAERS Safety Report 12437241 (Version 1)
Quarter: 2016Q2

REPORT INFORMATION
  Report Type: Spontaneous
  Country: CH (occurrence: CH)
  Receive Date: 20160606
  Receipt Date: 20160606
  Transmission Date: 20160815
  Serious: Yes (Hospitalization)
  Sender: FDA-Public Use
  Company Number: CH-SA-2016SA104422

PATIENT
  Age: 79 Year
  Sex: Female

DRUGS (13)
  1. TEMESTA [Concomitant]
     Active Substance: LORAZEPAM
     Route: 048
  2. PANTOZOL [Concomitant]
     Active Substance: PANTOPRAZOLE SODIUM
     Route: 065
  3. PLAQUENIL [Concomitant]
     Active Substance: HYDROXYCHLOROQUINE SULFATE
     Dosage: FORM FILMS
     Route: 048
  4. TORASEMIDE [Concomitant]
     Active Substance: TORSEMIDE
     Route: 048
  5. TORASEMIDE [Concomitant]
     Active Substance: TORSEMIDE
     Route: 065
  6. XARELTO [Concomitant]
     Active Substance: RIVAROXABAN
     Route: 048
  7. SALAZOPYRINE [Concomitant]
     Active Substance: SULFASALAZINE
     Route: 048
  8. PREDNISON [Concomitant]
     Active Substance: PREDNISONE
     Route: 048
  9. PANTOZOL [Concomitant]
     Active Substance: PANTOPRAZOLE SODIUM
     Route: 048
  10. ARAVA [Suspect]
     Active Substance: LEFLUNOMIDE
     Route: 048
     Dates: start: 201603, end: 20160503
  11. TRIATEC [Concomitant]
     Active Substance: RAMIPRIL
     Route: 048
  12. CONCOR [Concomitant]
     Active Substance: BISOPROLOL FUMARATE
     Route: 048
  13. ELTROXIN [Concomitant]
     Active Substance: LEVOTHYROXINE
     Route: 048

REACTIONS (1)
  - Mixed liver injury [Recovering/Resolving]

NARRATIVE: CASE EVENT DATE: 20160429
